FAERS Safety Report 24647171 (Version 1)
Quarter: 2024Q4

REPORT INFORMATION
  Report Type: Spontaneous
  Country: US (occurrence: None)
  Receive Date: 20241120
  Receipt Date: 20241120
  Transmission Date: 20250115
  Serious: Yes (Disabling, Other)
  Sender: Public
  Company Number: None

PATIENT
  Age: 62 Year
  Sex: Female
  Weight: 63 kg

DRUGS (8)
  1. MULTIHANCE [Suspect]
     Active Substance: GADOBENATE DIMEGLUMINE
     Indication: Scan with contrast
     Route: 042
     Dates: start: 20170420, end: 20170420
  2. hydrochlorothiazide one aspirin [Concomitant]
  3. VITAMINS [Concomitant]
     Active Substance: VITAMINS
  4. CURCUMIN [Concomitant]
     Active Substance: CURCUMIN
  5. mega red [Concomitant]
  6. d3/k2 [Concomitant]
  7. DIETARY SUPPLEMENT\HERBALS\MILK THISTLE [Concomitant]
     Active Substance: MILK THISTLE
  8. PROGESTERONE [Concomitant]
     Active Substance: PROGESTERONE

REACTIONS (25)
  - Feeling abnormal [None]
  - Decreased activity [None]
  - Impaired driving ability [None]
  - Gait disturbance [None]
  - Altered visual depth perception [None]
  - Balance disorder [None]
  - Migraine [None]
  - Granuloma [None]
  - Gliosis [None]
  - Cerebral small vessel ischaemic disease [None]
  - Arthropathy [None]
  - Muscle spasms [None]
  - Formication [None]
  - Skin burning sensation [None]
  - Pigmentation disorder [None]
  - Visual impairment [None]
  - Dry eye [None]
  - Gastrointestinal disorder [None]
  - Bone pain [None]
  - Arthralgia [None]
  - Dyspnoea [None]
  - Cardiac disorder [None]
  - Renal disorder [None]
  - Overchelation [None]
  - Muscle tightness [None]

NARRATIVE: CASE EVENT DATE: 20170420
